FAERS Safety Report 5126313-6 (Version None)
Quarter: 2006Q3

REPORT INFORMATION
  Report Type: 
  Country: None (occurrence: None)
  Receive Date: 20060825
  Receipt Date: 20060220
  Transmission Date: 20061208
  Serious: Yes (Hospitalization)
  Sender: FDA-Public Use
  Company Number: 06P-163-0325464-00

PATIENT
  Age: 74 Year
  Sex: Female
  Weight: 68.0396 kg

DRUGS (1)
  1. SYNTHROID [Suspect]
     Indication: THYROID NEOPLASM
     Dosage: 100 MCG, 1 IN 1 D,PER ORAL
     Route: 048
     Dates: start: 20051210, end: 20051216

REACTIONS (1)
  - HEART RATE INCREASED [None]
